FAERS Safety Report 8709777 (Version 3)
Quarter: 2012Q4

REPORT INFORMATION
  Report Type: 
  Country: US (occurrence: US)
  Receive Date: 20120806
  Receipt Date: 20120904
  Transmission Date: 20130627
  Serious: Yes (Death)
  Sender: FDA-Public Use
  Company Number: US-CELGENEUS-163-21880-12080263

PATIENT
  Age: 81 Year
  Sex: Female

DRUGS (4)
  1. REVLIMID [Suspect]
     Indication: ACUTE MYELOID LEUKEMIA
     Dosage: 50 Milligram
     Route: 048
     Dates: start: 20110713, end: 2011
  2. REVLIMID [Suspect]
     Dosage: 10 Milligram
     Route: 048
     Dates: start: 201109, end: 201112
  3. REVLIMID [Suspect]
     Dosage: 5 Milligram
     Route: 048
     Dates: start: 201112, end: 20120323
  4. VIDAZA [Suspect]
     Indication: ACUTE MYELOID LEUKEMIA
     Route: 065
     Dates: end: 201203

REACTIONS (1)
  - Myocardial infarction [Fatal]
